FAERS Safety Report 7098345-2 (Version None)
Quarter: 2010Q4

REPORT INFORMATION
  Report Type: 
  Country: None (occurrence: None)
  Receive Date: 20101112
  Receipt Date: 20101108
  Transmission Date: 20110411
  Serious: No
  Sender: FDA-Public Use
  Company Number: US-PFIZER INC-2007067264

PATIENT
  Sex: Male
  Weight: 65 kg

DRUGS (5)
  1. LYRICA [Suspect]
     Indication: NERVOUS SYSTEM DISORDER
     Dosage: 100 MG, 3X/DAY
     Route: 048
     Dates: start: 20070807
  2. LYRICA [Suspect]
     Indication: NEUROPATHY PERIPHERAL
     Dosage: 100 MG, UNK
     Route: 048
  3. SYNTHROID [Concomitant]
     Indication: THYROID DISORDER
     Dosage: UNK
     Route: 048
  4. VITAMIN B-12 [Concomitant]
     Dosage: UNK
  5. ACETYLSALICYLIC ACID [Concomitant]

REACTIONS (7)
  - BALANCE DISORDER [None]
  - DIZZINESS [None]
  - EYE PAIN [None]
  - HEADACHE [None]
  - MALAISE [None]
  - SOMNOLENCE [None]
  - VISION BLURRED [None]
